FAERS Safety Report 21511496 (Version 2)
Quarter: 2022Q4

REPORT INFORMATION
  Report Type: Other
  Country: US (occurrence: None)
  Receive Date: 20221027
  Receipt Date: 20221102
  Transmission Date: 20230113
  Serious: Yes (Hospitalization, Other)
  Sender: FDA-Public Use
  Company Number: US-ROCHE-3206011

PATIENT
  Age: 72 Year
  Sex: Male
  Weight: 78.996 kg

DRUGS (2)
  1. ERIVEDGE [Suspect]
     Active Substance: VISMODEGIB
     Indication: Basal cell carcinoma
     Dosage: TAKE 1 CAPSULE BY MOUTH DAILY FOR 28 DAYS
     Route: 048
  2. CABOZANTINIB [Concomitant]
     Active Substance: CABOZANTINIB
     Indication: Renal cell carcinoma

REACTIONS (6)
  - Muscle spasms [Unknown]
  - Weight decreased [Unknown]
  - Decreased appetite [Unknown]
  - Renal cell carcinoma [Unknown]
  - Fall [Unknown]
  - Dysgeusia [Unknown]
